FAERS Safety Report 16918777 (Version 1)
Quarter: 2019Q4

REPORT INFORMATION
  Report Type: Spontaneous
  Country: US (occurrence: US)
  Receive Date: 20190822
  Receipt Date: 20190822
  Transmission Date: 20200122
  Serious: Yes (Hospitalization)
  Sender: FDA-Public Use
  Company Number: None

PATIENT
  Age: 63 Year
  Sex: Male
  Weight: 95.25 kg

DRUGS (7)
  1. LEVOTHYROXIN  100MCG  1/DAY [Concomitant]
  2. SULFAMETHOXAZOL-E-TMP DS TABLET [Suspect]
     Active Substance: SULFAMETHOXAZOLE\TRIMETHOPRIM
     Indication: PROSTATITIS
     Dosage: ?          QUANTITY:1 DF DOSAGE FORM;?
     Dates: start: 20190718, end: 20190802
  3. METFORMIN 500MG  2/DAY [Concomitant]
  4. PRAVASTATIN 40MG  1/DAY [Concomitant]
  5. PANTOPROZOLE 40MG  1/DAY [Concomitant]
  6. LISINOPRIL 10MG 1/DAY [Concomitant]
  7. TADALAFIL 5MG  1/DAY [Concomitant]

REACTIONS (2)
  - Pruritus [None]
  - Urticaria [None]

NARRATIVE: CASE EVENT DATE: 20190803
